FAERS Safety Report 14635546 (Version 1)
Quarter: 2018Q1

REPORT INFORMATION
  Report Type: Spontaneous
  Country: FR (occurrence: FR)
  Receive Date: 20180314
  Receipt Date: 20180314
  Transmission Date: 20180509
  Serious: Yes (Other)
  Sender: FDA-Public Use
  Company Number: FR-PFIZER INC-2018099501

PATIENT
  Age: 56 Year
  Sex: Male

DRUGS (1)
  1. TAHOR [Suspect]
     Active Substance: ATORVASTATIN CALCIUM
     Indication: DYSLIPIDAEMIA
     Dosage: 1 DF, UNK
     Route: 048
     Dates: start: 20140731, end: 20160906

REACTIONS (4)
  - Hyperbilirubinaemia [Unknown]
  - Jaundice [Recovered/Resolved]
  - Ascites [Recovered/Resolved]
  - Prothrombin time shortened [Unknown]

NARRATIVE: CASE EVENT DATE: 201604
